FAERS Safety Report 10077872 (Version 1)
Quarter: 2014Q2

REPORT INFORMATION
  Report Type: Spontaneous
  Country: CO (occurrence: CO)
  Receive Date: 20140414
  Receipt Date: 20140414
  Transmission Date: 20141212
  Serious: Yes (Other)
  Sender: FDA-Public Use
  Company Number: CO-UCBSA-118088

PATIENT
  Sex: Female

DRUGS (2)
  1. NEUPRO [Suspect]
     Indication: PARKINSON^S DISEASE
     Dosage: DAILY DOSE: 2 MG
     Route: 062
     Dates: end: 201403
  2. NEUPRO [Suspect]
     Indication: PARKINSON^S DISEASE
     Dosage: DAILY DOSE: 4 MG
     Route: 062
     Dates: start: 20140321, end: 20140401

REACTIONS (4)
  - Tremor [Unknown]
  - Nail discolouration [Unknown]
  - Dyspnoea [Unknown]
  - Fatigue [Unknown]
